FAERS Safety Report 20838540 (Version 2)
Quarter: 2022Q2

REPORT INFORMATION
  Report Type: Spontaneous
  Country: US (occurrence: US)
  Receive Date: 20220517
  Receipt Date: 20220523
  Transmission Date: 20220721
  Serious: Yes (Hospitalization)
  Sender: FDA-Public Use
  Company Number: US-PFIZER INC-202200630413

PATIENT
  Age: 66 Year
  Sex: Female

DRUGS (1)
  1. IBRANCE [Suspect]
     Active Substance: PALBOCICLIB
     Dosage: UNK

REACTIONS (6)
  - Jaundice [Unknown]
  - Product dose omission issue [Unknown]
  - Fatigue [Unknown]
  - Trismus [Unknown]
  - Asthenia [Unknown]
  - Ocular hyperaemia [Unknown]
